FAERS Safety Report 18767519 (Version 1)
Quarter: 2021Q1

REPORT INFORMATION
  Report Type: Spontaneous
  Country: AU (occurrence: AU)
  Receive Date: 20210121
  Receipt Date: 20210121
  Transmission Date: 20210419
  Serious: Yes (Other)
  Sender: FDA-Public Use
  Company Number: AU-ABBVIE-21K-008-3736399-00

PATIENT
  Sex: Female

DRUGS (3)
  1. HUMIRA [Suspect]
     Active Substance: ADALIMUMAB
     Indication: ANKYLOSING SPONDYLITIS
     Route: 058
  2. HUMIRA [Suspect]
     Active Substance: ADALIMUMAB
     Indication: RHEUMATOID ARTHRITIS
  3. HUMIRA [Suspect]
     Active Substance: ADALIMUMAB
     Indication: UVEITIS
     Route: 058
     Dates: start: 202008

REACTIONS (8)
  - Ovarian cancer [Unknown]
  - Malaise [Unknown]
  - Fatigue [Unknown]
  - Device difficult to use [Unknown]
  - Grip strength decreased [Unknown]
  - Condition aggravated [Unknown]
  - Eye disorder [Unknown]
  - Immobile [Unknown]

NARRATIVE: CASE EVENT DATE: 2015
